FAERS Safety Report 4847860-8 (Version None)
Quarter: 2005Q4

REPORT INFORMATION
  Report Type: 
  Country: None (occurrence: None)
  Receive Date: 20051208
  Receipt Date: 20051202
  Transmission Date: 20060501
  Serious: Yes (Death)
  Sender: FDA-Public Use
  Company Number: PHBS2005NO17942

PATIENT
  Age: 89 Year
  Sex: Female

DRUGS (7)
  1. VOLTAREN [Suspect]
     Indication: BACK PAIN
     Dosage: 50 MG, TID
     Dates: start: 20051107, end: 20051109
  2. ALBYL-E [Suspect]
     Indication: PROPHYLAXIS
     Dosage: 160 MG, QD
  3. SIMVASTATIN [Concomitant]
     Indication: CEREBROVASCULAR DISORDER
     Dosage: 20 MG, QD
  4. PLAVIX [Suspect]
     Indication: CEREBROVASCULAR ACCIDENT
     Dosage: 75 MG, QD
  5. PARACET [Concomitant]
     Indication: BACK PAIN
     Dosage: 500 MG, QID
  6. REMERON [Concomitant]
     Indication: DEPRESSION
     Dosage: 30 MG, QD
  7. DETROL [Concomitant]
     Indication: URINARY INCONTINENCE
     Dosage: 4 MG, QD

REACTIONS (4)
  - ABDOMINAL PAIN UPPER [None]
  - HAEMATEMESIS [None]
  - NAUSEA [None]
  - VOMITING [None]
